FAERS Safety Report 10782526 (Version 1)
Quarter: 2015Q1

REPORT INFORMATION
  Report Type: Spontaneous
  Country: US (occurrence: US)
  Receive Date: 20150210
  Receipt Date: 20150210
  Transmission Date: 20150721
  Serious: No
  Sender: FDA-Public Use
  Company Number: US-GLAXOSMITHKLINE-A1073556A

PATIENT

DRUGS (18)
  1. CITALOPRAM [Concomitant]
     Active Substance: CITALOPRAM HYDROBROMIDE
  2. NADOLOL. [Concomitant]
     Active Substance: NADOLOL
  3. BUPROPION [Concomitant]
     Active Substance: BUPROPION
  4. LOSARTAN [Concomitant]
     Active Substance: LOSARTAN
  5. OMEPRAZOLE. [Concomitant]
     Active Substance: OMEPRAZOLE
  6. TRAMADOL HCL [Concomitant]
     Active Substance: TRAMADOL HYDROCHLORIDE
  7. DIVALPROEX [Concomitant]
     Active Substance: DIVALPROEX SODIUM
  8. MIRABEGRON [Concomitant]
     Active Substance: MIRABEGRON
  9. ZOLPIDEM [Concomitant]
     Active Substance: ZOLPIDEM\ZOLPIDEM TARTRATE
  10. RIFAXIMIN [Concomitant]
     Active Substance: RIFAXIMIN
  11. VITAMIN [Concomitant]
     Active Substance: VITAMINS
  12. ALLI [Suspect]
     Active Substance: ORLISTAT
     Indication: WEIGHT DECREASED
  13. AMLODIPINE [Concomitant]
     Active Substance: AMLODIPINE BESYLATE
  14. METAMUCIL [Concomitant]
     Active Substance: PLANTAGO SEED
  15. CHOLECALCIFEROL [Concomitant]
     Active Substance: CHOLECALCIFEROL
  16. ASPIRIN. [Concomitant]
     Active Substance: ASPIRIN
  17. COLCRYS [Concomitant]
     Active Substance: COLCHICINE
  18. CYANOCOBALAMIN + VITAMIN B COMPLEX [Concomitant]

REACTIONS (2)
  - Faecal incontinence [Not Recovered/Not Resolved]
  - Drug administration error [Unknown]
